FAERS Safety Report 6614388-4 (Version None)
Quarter: 2010Q1

REPORT INFORMATION
  Report Type: 
  Country: None (occurrence: None)
  Receive Date: 20100303
  Receipt Date: 20100303
  Transmission Date: 20100710
  Serious: Yes (Other)
  Sender: FDA-Public Use
  Company Number: None

PATIENT
  Age: 39 Year
  Sex: Female
  Weight: 64.4108 kg

DRUGS (1)
  1. FRAGMIN [Suspect]
     Indication: DEEP VEIN THROMBOSIS
     Dosage: 1 ML ONCE DAILY SQ
     Route: 058
     Dates: start: 20100202, end: 20100202

REACTIONS (6)
  - ABDOMINAL PAIN UPPER [None]
  - NO THERAPEUTIC RESPONSE [None]
  - PAIN [None]
  - PRODUCT QUALITY ISSUE [None]
  - PRURITUS [None]
  - URTICARIA [None]
